FAERS Safety Report 19933671 (Version 2)
Quarter: 2022Q1

REPORT INFORMATION
  Report Type: Report from Study
  Country: US (occurrence: US)
  Receive Date: 20211008
  Receipt Date: 20220201
  Transmission Date: 20220423
  Serious: No
  Sender: FDA-Public Use
  Company Number: US-KYOWAKIRIN-2021BKK016539

PATIENT

DRUGS (2)
  1. CRYSVITA [Suspect]
     Active Substance: BUROSUMAB-TWZA
     Indication: Hereditary hypophosphataemic rickets
     Dosage: 60 MG (COMBINED WITH CRYSVITA STRENGTH 20 MG/ML TO ACHIEVE DOSE OF 80 MG), EVERY 4 WEEKS
     Route: 058
     Dates: start: 20180810
  2. CRYSVITA [Suspect]
     Active Substance: BUROSUMAB-TWZA
     Indication: Hereditary hypophosphataemic rickets
     Dosage: 20 MG (COMBINED WITH CRYSVITA STRENGTH 30 MG/ML TO ACHIEVE DOSE OF 80 MG), EVERY 4 WEEKS
     Route: 058
     Dates: start: 20180810

REACTIONS (1)
  - Weight increased [Not Recovered/Not Resolved]
